FAERS Safety Report 4408026-9 (Version None)
Quarter: 2004Q3

REPORT INFORMATION
  Report Type: 
  Country: None (occurrence: None)
  Receive Date: 20040726
  Receipt Date: 20040716
  Transmission Date: 20050211
  Serious: Yes (Other)
  Sender: FDA-Public Use
  Company Number: GB-MERCK-0407USA01387

PATIENT
  Age: 48 Year
  Sex: Male
  Weight: 90 kg

DRUGS (2)
  1. PRINIVIL [Suspect]
     Indication: HYPERTENSION
     Route: 048
     Dates: start: 20040615, end: 20040624
  2. PENICILLIN V [Concomitant]
     Indication: PHARYNGITIS
     Route: 048
     Dates: start: 20040419, end: 20040426

REACTIONS (2)
  - HEADACHE [None]
  - MIGRAINE WITH AURA [None]
